FAERS Safety Report 7539195-X (Version None)
Quarter: 2011Q2

REPORT INFORMATION
  Report Type: 
  Country: None (occurrence: None)
  Receive Date: 20110610
  Receipt Date: 20110607
  Transmission Date: 20111010
  Serious: Yes (Death, Life-Threatening, Hospitalization)
  Sender: FDA-Public Use
  Company Number: FR-JNJFOC-20110602904

PATIENT
  Sex: Male
  Weight: 54 kg

DRUGS (18)
  1. LYRICA [Concomitant]
     Indication: CANCER PAIN
     Route: 065
  2. CRESTOR [Concomitant]
     Route: 065
  3. RABEPRAZOLE SODIUM [Suspect]
     Indication: PRODUCT USED FOR UNKNOWN INDICATION
     Route: 048
  4. CLONAZEPAM [Concomitant]
     Indication: CANCER PAIN
     Route: 065
  5. ASPIRIN [Concomitant]
     Route: 065
  6. ELOXATIN [Suspect]
     Indication: BRONCHIAL CARCINOMA
     Route: 042
     Dates: start: 20110117, end: 20110207
  7. VITAMIN B-12 [Concomitant]
     Indication: PREMEDICATION
     Route: 065
  8. EFFEXOR [Concomitant]
     Route: 065
  9. FOLIC ACID [Concomitant]
     Indication: PREMEDICATION
     Route: 065
  10. DURAGESIC-100 [Suspect]
     Indication: CANCER PAIN
     Route: 062
  11. KETOPROFEN [Concomitant]
     Indication: CANCER PAIN
     Route: 065
  12. PREDNISONE [Concomitant]
     Indication: PREMEDICATION
     Route: 065
  13. LEVOTHYROXINE SODIUM [Concomitant]
     Route: 065
  14. BRICANYL [Concomitant]
     Route: 065
  15. FENTANYL CITRATE [Concomitant]
     Indication: CANCER PAIN
     Route: 065
  16. FORLAX [Concomitant]
     Indication: GASTROINTESTINAL DISORDER
     Route: 065
  17. ALIMTA [Suspect]
     Indication: BRONCHIAL CARCINOMA
     Route: 042
     Dates: start: 20110117, end: 20110207
  18. PERISTALTINE [Concomitant]
     Indication: GASTROINTESTINAL DISORDER
     Route: 065

REACTIONS (1)
  - SEPTIC SHOCK [None]
